FAERS Safety Report 22227163 (Version 1)
Quarter: 2023Q2

REPORT INFORMATION
  Report Type: Spontaneous
  Country: US (occurrence: US)
  Receive Date: 20230419
  Receipt Date: 20230419
  Transmission Date: 20230721
  Serious: No
  Sender: FDA-Public Use
  Company Number: US-SA-SAC20230418000233

PATIENT
  Sex: Male
  Weight: 108.8 kg

DRUGS (1)
  1. DUPIXENT [Suspect]
     Active Substance: DUPILUMAB
     Indication: Dermatitis atopic
     Dosage: 300 MG QOW
     Route: 058

REACTIONS (7)
  - Injection site pain [Unknown]
  - Skin swelling [Unknown]
  - Dry skin [Unknown]
  - Skin atrophy [Unknown]
  - Skin haemorrhage [Unknown]
  - Dermatitis atopic [Unknown]
  - Drug ineffective [Unknown]
